FAERS Safety Report 4931111-X (Version None)
Quarter: 2006Q1

REPORT INFORMATION
  Report Type: 
  Country: None (occurrence: None)
  Receive Date: 20060227
  Receipt Date: 20060214
  Transmission Date: 20060701
  Serious: Yes (Hospitalization, Other)
  Sender: FDA-Public Use
  Company Number: 200610571BCC

PATIENT
  Age: 59 Year
  Sex: Male
  Weight: 95.2554 kg

DRUGS (8)
  1. ALEVE [Suspect]
     Indication: BACK PAIN
     Dosage: 440 MG, ONCE, ORAL
     Route: 048
     Dates: start: 20060118
  2. ALEVE [Suspect]
     Indication: PAIN IN EXTREMITY
     Dosage: 440 MG, ONCE, ORAL
     Route: 048
     Dates: start: 20060118
  3. ALEVE [Suspect]
     Indication: BACK PAIN
     Dosage: 440 MG, ONCE, ORAL
     Route: 048
     Dates: start: 20060201
  4. ALEVE [Suspect]
     Indication: PAIN IN EXTREMITY
     Dosage: 440 MG, ONCE, ORAL
     Route: 048
     Dates: start: 20060201
  5. ZOLOFT [Concomitant]
  6. OMEPRAZOLE [Concomitant]
  7. ASPIRIN [Concomitant]
  8. ATENOLOL [Concomitant]

REACTIONS (10)
  - CHEST DISCOMFORT [None]
  - DIZZINESS [None]
  - FAECAL INCONTINENCE [None]
  - HYPERHIDROSIS [None]
  - HYPOTENSION [None]
  - LOSS OF CONSCIOUSNESS [None]
  - PARAESTHESIA [None]
  - PHOTOPHOBIA [None]
  - PRURITUS [None]
  - WHITE BLOOD CELL COUNT INCREASED [None]
